FAERS Safety Report 23599393 (Version 2)
Quarter: 2024Q1

REPORT INFORMATION
  Report Type: Other
  Country: US (occurrence: None)
  Receive Date: 20240306
  Receipt Date: 20240327
  Transmission Date: 20240410
  Serious: Yes (Death)
  Sender: FDA-Public Use
  Company Number: US-ROCHE-3520470

PATIENT
  Age: 3 Year
  Sex: Male
  Weight: 14.4 kg

DRUGS (4)
  1. EVRYSDI [Suspect]
     Active Substance: RISDIPLAM
     Indication: Spinal muscular atrophy
     Route: 048
     Dates: start: 20220223, end: 20220425
  2. NUSINERSEN [Concomitant]
     Active Substance: NUSINERSEN
  3. CALMOSEPTINE (UNITED STATES) [Concomitant]
  4. MUCOMYST [Concomitant]
     Active Substance: ACETYLCYSTEINE

REACTIONS (1)
  - Death [Fatal]

NARRATIVE: CASE EVENT DATE: 20231021
